FAERS Safety Report 9187072 (Version 3)
Quarter: 2013Q2

REPORT INFORMATION
  Report Type: Spontaneous
  Country: US (occurrence: US)
  Receive Date: 20130325
  Receipt Date: 20130419
  Transmission Date: 20140414
  Serious: No
  Sender: FDA-Public Use
  Company Number: US-PFIZER INC-2013092272

PATIENT
  Sex: Female

DRUGS (3)
  1. IBUPROFEN [Suspect]
     Dosage: 8900 MG, DAILY
  2. OXYCODONE HYDROCHLORIDE [Suspect]
     Dosage: UNK
  3. NAPROSYN [Suspect]
     Dosage: UNK

REACTIONS (2)
  - Overdose [Unknown]
  - Drug ineffective [Unknown]
